FAERS Safety Report 10236745 (Version 1)
Quarter: 2014Q2

REPORT INFORMATION
  Report Type: Report from Study
  Country: AR (occurrence: AR)
  Receive Date: 20140613
  Receipt Date: 20140613
  Transmission Date: 20141212
  Serious: Yes (Other)
  Sender: FDA-Public Use
  Company Number: AR-US-EMD SERONO, INC.-7297450

PATIENT
  Sex: Male

DRUGS (2)
  1. REBIF [Suspect]
     Indication: MULTIPLE SCLEROSIS
     Dates: start: 19990428, end: 20011122
  2. REBIF [Suspect]
     Dates: start: 20011123, end: 201311

REACTIONS (2)
  - Lymphoma [Unknown]
  - Hepatic steatosis [Unknown]
